FAERS Safety Report 19976905 (Version 1)
Quarter: 2021Q4

REPORT INFORMATION
  Report Type: Spontaneous
  Country: ID (occurrence: ID)
  Receive Date: 20211020
  Receipt Date: 20211020
  Transmission Date: 20220303
  Serious: Yes (Death)
  Sender: FDA-Public Use
  Company Number: ID-LUPIN PHARMACEUTICALS INC.-2021-19955

PATIENT
  Age: 23 Year
  Sex: Male

DRUGS (2)
  1. LORAZEPAM [Suspect]
     Active Substance: LORAZEPAM
     Indication: Neuroleptic malignant syndrome
     Dosage: UNK
     Route: 065
  2. BROMOCRIPTINE [Suspect]
     Active Substance: BROMOCRIPTINE
     Indication: Neuroleptic malignant syndrome
     Dosage: UNK
     Route: 065

REACTIONS (2)
  - Drug ineffective for unapproved indication [Fatal]
  - Off label use [Unknown]
